FAERS Safety Report 10163979 (Version 1)
Quarter: 2014Q2

REPORT INFORMATION
  Report Type: Spontaneous
  Country: US (occurrence: US)
  Receive Date: 20140510
  Receipt Date: 20140510
  Transmission Date: 20141212
  Serious: No
  Sender: FDA-Public Use
  Company Number: US-BRISTOL-MYERS SQUIBB COMPANY-19735778

PATIENT
  Age: 54 Year
  Sex: Female
  Weight: 86.53 kg

DRUGS (4)
  1. BYETTA PEN DISPOSABLE [Suspect]
     Indication: TYPE 2 DIABETES MELLITUS
     Dosage: PRESCRIPTION #: 45-41004914345
     Route: 058
     Dates: start: 2013
  2. HUMALOG [Suspect]
  3. LANTUS [Suspect]
     Dosage: 1DF:26 UNITS AT BED TIME
  4. SYNTHROID [Concomitant]
     Indication: THYROID DISORDER

REACTIONS (5)
  - Vomiting [Unknown]
  - Blood glucose decreased [Unknown]
  - Parosmia [Unknown]
  - Decreased appetite [Unknown]
  - Weight decreased [Unknown]
